FAERS Safety Report 11329981 (Version 1)
Quarter: 2015Q3

REPORT INFORMATION
  Report Type: Spontaneous
  Country: US (occurrence: None)
  Receive Date: 20150730
  Receipt Date: 20150730
  Transmission Date: 20151125
  Serious: Yes (Hospitalization)
  Sender: FDA-Public Use
  Company Number: None

PATIENT
  Age: 34 Year
  Sex: Male
  Weight: 68.04 kg

DRUGS (1)
  1. PROSCAR [Suspect]
     Active Substance: FINASTERIDE
     Indication: ANDROGENETIC ALOPECIA
     Dosage: 5MG/CU INTO QUARTERS   ONCE DAILY TAKEN BY MOUTH
     Route: 048

REACTIONS (15)
  - Depression [None]
  - Alopecia [None]
  - Muscle atrophy [None]
  - Hypohidrosis [None]
  - Dry skin [None]
  - Testicular pain [None]
  - Testicular atrophy [None]
  - Fatigue [None]
  - Panic attack [None]
  - Skin odour abnormal [None]
  - Diarrhoea [None]
  - Body temperature decreased [None]
  - Depressed level of consciousness [None]
  - Erectile dysfunction [None]
  - Abnormal faeces [None]
